FAERS Safety Report 12692117 (Version 2)
Quarter: 2016Q3

REPORT INFORMATION
  Report Type: Spontaneous
  Country: FR (occurrence: FR)
  Receive Date: 20160827
  Receipt Date: 20160901
  Transmission Date: 20161109
  Serious: Yes (Other)
  Sender: FDA-Public Use
  Company Number: FR-B.I. PHARMACEUTICALS,INC./RIDGEFIELD-2016-BI-55590FF

PATIENT
  Sex: Male

DRUGS (2)
  1. SIFROL [Suspect]
     Active Substance: PRAMIPEXOLE
     Indication: PARKINSON^S DISEASE
     Route: 048
     Dates: start: 200606, end: 20160225
  2. SIFROL [Suspect]
     Active Substance: PRAMIPEXOLE
     Dosage: 3.15 MG
     Route: 048
     Dates: start: 20110322

REACTIONS (4)
  - Insomnia [Unknown]
  - Dizziness [Unknown]
  - Suicidal ideation [Unknown]
  - Gambling disorder [Recovered/Resolved]
